FAERS Safety Report 11168206 (Version 1)
Quarter: 2015Q2

REPORT INFORMATION
  Report Type: Spontaneous
  Country: US (occurrence: US)
  Receive Date: 20150605
  Receipt Date: 20150605
  Transmission Date: 20150821
  Serious: Yes (Other)
  Sender: FDA-Public Use
  Company Number: US-BAYER-2015-306655

PATIENT
  Age: 34 Year
  Sex: Female

DRUGS (3)
  1. BENADRYL [Concomitant]
     Active Substance: DIPHENHYDRAMINE HYDROCHLORIDE
     Indication: CONTRAST MEDIA ALLERGY
  2. PREDNISONE. [Concomitant]
     Active Substance: PREDNISONE
     Indication: CONTRAST MEDIA ALLERGY
  3. GADAVIST [Suspect]
     Active Substance: GADOBUTROL
     Indication: ARTHROGRAM
     Dosage: 0.1 ML, ONCE
     Dates: start: 20150528, end: 20150528

REACTIONS (3)
  - Erythema [Recovered/Resolved]
  - Swollen tongue [Recovered/Resolved]
  - Palpitations [Recovered/Resolved]

NARRATIVE: CASE EVENT DATE: 20150529
